FAERS Safety Report 4496267-4 (Version None)
Quarter: 2004Q3

REPORT INFORMATION
  Report Type: 
  Country: None (occurrence: None)
  Receive Date: 20040921
  Receipt Date: 20040317
  Transmission Date: 20050211
  Serious: Yes (Hospitalization)
  Sender: FDA-Public Use
  Company Number: 163-20785-04030497

PATIENT
  Age: 48 Year
  Sex: Female

DRUGS (5)
  1. THALOMID [Suspect]
     Indication: MULTIPLE MYELOMA
     Dosage: 100 MG, DAILY, ORAL
     Route: 048
     Dates: start: 20031126, end: 20040107
  2. DEXAMETHASONE [Suspect]
     Indication: MULTIPLE MYELOMA
     Dosage: 40 MG, DAILY, ORAL
     Route: 048
     Dates: start: 20040107, end: 20040110
  3. CYCLOPHOSPHAMIDE [Suspect]
     Indication: MULTIPLE MYELOMA
     Dosage: 624 MG, DAILY, INTRAVENOUS
     Route: 042
     Dates: start: 20040107, end: 20040110
  4. ETOPOSIDE [Suspect]
     Indication: MULTIPLE MYELOMA
     Dosage: 62 MG, DAILY, INTRAVENOUS
     Route: 042
     Dates: start: 20040107, end: 20040110
  5. CISPLATIN [Suspect]
     Indication: MULTIPLE MYELOMA
     Dosage: 23 MG, DAILY, INTRAVENOUS
     Route: 042
     Dates: start: 20040107, end: 20040110

REACTIONS (2)
  - LUNG INFILTRATION [None]
  - STAPHYLOCOCCAL INFECTION [None]
